FAERS Safety Report 23868490 (Version 1)
Quarter: 2024Q2

REPORT INFORMATION
  Report Type: Spontaneous
  Country: CN (occurrence: CN)
  Receive Date: 20240517
  Receipt Date: 20240517
  Transmission Date: 20240715
  Serious: Yes (Hospitalization)
  Sender: FDA-Public Use
  Company Number: CN-PFIZER INC-PV202400063706

PATIENT
  Age: 88 Year
  Sex: Female

DRUGS (3)
  1. ZYVOX [Suspect]
     Active Substance: LINEZOLID
     Indication: Anti-infective therapy
     Dosage: BID
     Dates: start: 20240505, end: 20240510
  2. MOXIFLOXACIN HYDROCHLORIDE [Suspect]
     Active Substance: MOXIFLOXACIN HYDROCHLORIDE\MOXIFLOXACIN HYDROCHLORIDE MONOHYDRATE
     Indication: Anal abscess
     Dosage: QD
     Dates: start: 20240430, end: 20240502
  3. MEROPENEM [Suspect]
     Active Substance: MEROPENEM
     Indication: Anti-infective therapy
     Dosage: Q8H
     Dates: start: 20240430, end: 20240508

REACTIONS (4)
  - Drug ineffective [Unknown]
  - Platelet count decreased [Unknown]
  - Tremor [Unknown]
  - Dyskinesia [Unknown]

NARRATIVE: CASE EVENT DATE: 20240507
